FAERS Safety Report 7979918 (Version 3)
Quarter: 2013Q4

REPORT INFORMATION
  Report Type: Spontaneous
  Country: IE (occurrence: IE)
  Receive Date: 20110608
  Receipt Date: 20131021
  Transmission Date: 20140711
  Serious: Yes (Other)
  Sender: FDA-Public Use
  Company Number: IE-ROCHE-709959

PATIENT
  Sex: Male

DRUGS (1)
  1. LARIAM [Suspect]
     Indication: MALARIA PROPHYLAXIS
     Dosage: DOSE AND FREQUENCY NOT PROVIDED.
     Route: 065
     Dates: start: 2004, end: 2005

REACTIONS (17)
  - Hallucination [Unknown]
  - Muscle spasms [Unknown]
  - Local swelling [Unknown]
  - Insomnia [Not Recovered/Not Resolved]
  - Depression [Not Recovered/Not Resolved]
  - Anxiety [Unknown]
  - Myalgia [Unknown]
  - Chest pain [Unknown]
  - Abdominal pain upper [Unknown]
  - Renal pain [Unknown]
  - Mental disorder [Unknown]
  - Joint swelling [Unknown]
  - Headache [Unknown]
  - Diarrhoea [Unknown]
  - Fatigue [Not Recovered/Not Resolved]
  - Paranoia [Unknown]
  - Aggression [Unknown]
